FAERS Safety Report 7308479-2 (Version None)
Quarter: 2011Q1

REPORT INFORMATION
  Report Type: 
  Country: None (occurrence: None)
  Receive Date: 20110223
  Receipt Date: 20081201
  Transmission Date: 20110831
  Serious: No
  Sender: FDA-Public Use
  Company Number: 2008BI032432

PATIENT
  Age: 54 Year
  Sex: Male

DRUGS (1)
  1. TYSABRI [Suspect]
     Indication: MULTIPLE SCLEROSIS
     Route: 042
     Dates: start: 20080718, end: 20090814

REACTIONS (11)
  - DYSPHEMIA [None]
  - MUSCULAR WEAKNESS [None]
  - FEELING ABNORMAL [None]
  - MOBILITY DECREASED [None]
  - FATIGUE [None]
  - COORDINATION ABNORMAL [None]
  - POLYPECTOMY [None]
  - GAIT DISTURBANCE [None]
  - MYALGIA [None]
  - FALL [None]
  - ASTHENIA [None]
